FAERS Safety Report 9665297 (Version 1)
Quarter: 2013Q4

REPORT INFORMATION
  Report Type: Report from Study
  Country: CA (occurrence: CA)
  Receive Date: 20131101
  Receipt Date: 20131101
  Transmission Date: 20140711
  Serious: Yes (Death)
  Sender: FDA-Public Use
  Company Number: PHHY2013CA123595

PATIENT
  Age: 70 Year
  Sex: Male

DRUGS (5)
  1. ACLASTA [Suspect]
     Indication: OSTEOPOROSIS
     Dosage: UNK
     Route: 042
     Dates: start: 20080828
  2. ACLASTA [Suspect]
     Dosage: UNK
     Route: 042
     Dates: start: 20090901
  3. ACLASTA [Suspect]
     Dosage: UNK
     Route: 042
     Dates: start: 20100907
  4. ACLASTA [Suspect]
     Dosage: UNK
     Route: 042
     Dates: start: 20110906
  5. ACLASTA [Suspect]
     Dosage: UNK
     Route: 042
     Dates: start: 20120904

REACTIONS (1)
  - Death [Fatal]
